FAERS Safety Report 10237036 (Version 1)
Quarter: 2014Q1

REPORT INFORMATION
  Report Type: Spontaneous
  Country: US (occurrence: None)
  Receive Date: 20140306
  Receipt Date: 20140306
  Transmission Date: 20141002
  Serious: Yes (Other)
  Sender: FDA-Public Use
  Company Number: 163-21880-12121096

PATIENT
  Age: 82 Year
  Sex: Female

DRUGS (1)
  1. REVLIMID [Suspect]
     Indication: PLASMA CELL MYELOMA
     Route: 048
     Dates: start: 201107

REACTIONS (7)
  - Feeling drunk [None]
  - Fall [None]
  - Dizziness [None]
  - Constipation [None]
  - Nausea [None]
  - Malaise [None]
  - Adverse drug reaction [None]
